FAERS Safety Report 16389163 (Version 1)
Quarter: 2019Q2

REPORT INFORMATION
  Report Type: Spontaneous
  Country: US (occurrence: US)
  Receive Date: 20190604
  Receipt Date: 20190604
  Transmission Date: 20190711
  Serious: No
  Sender: FDA-Public Use
  Company Number: US-BIOGEN-2019BI00745730

PATIENT
  Age: 61 Year
  Sex: Female

DRUGS (4)
  1. TECFIDERA [Suspect]
     Active Substance: DIMETHYL FUMARATE
     Dosage: STARTING DOSE
     Route: 048
  2. TECFIDERA [Suspect]
     Active Substance: DIMETHYL FUMARATE
     Dosage: MAINTENANCE DOSE
     Route: 048
     Dates: start: 201901
  3. TECFIDERA [Suspect]
     Active Substance: DIMETHYL FUMARATE
     Indication: MULTIPLE SCLEROSIS
     Route: 048
     Dates: start: 20150623
  4. TECFIDERA [Suspect]
     Active Substance: DIMETHYL FUMARATE
     Dosage: MAINTENANCE DOSE
     Route: 048

REACTIONS (2)
  - Visual impairment [Unknown]
  - Underdose [Not Recovered/Not Resolved]

NARRATIVE: CASE EVENT DATE: 201901
